FAERS Safety Report 5079820-9 (Version None)
Quarter: 2006Q3

REPORT INFORMATION
  Report Type: 
  Country: None (occurrence: None)
  Receive Date: 20060720
  Receipt Date: 20050718
  Transmission Date: 20061208
  Serious: Yes (Other)
  Sender: FDA-Public Use
  Company Number: 2005079694

PATIENT
  Sex: Female
  Weight: 72.5755 kg

DRUGS (7)
  1. CELEBREX [Suspect]
     Indication: ARTHRITIS
     Dosage: 1 IN 1 D, ORAL
     Route: 048
     Dates: start: 20030101, end: 20040301
  2. AVAPRO [Concomitant]
  3. VYTORIN (EXETIMIBE SIMVASTATIN) [Concomitant]
  4. ISOSORBIDE DINITRATE [Concomitant]
  5. COREG [Concomitant]
  6. PLAVIX [Concomitant]
  7. ACETYLSALICYLIC ACID [Concomitant]

REACTIONS (3)
  - BUTTOCK PAIN [None]
  - CORONARY ARTERY DISEASE [None]
  - FALL [None]
